FAERS Safety Report 18571627 (Version 1)
Quarter: 2020Q4

REPORT INFORMATION
  Report Type: Spontaneous
  Country: US (occurrence: US)
  Receive Date: 20201202
  Receipt Date: 20201202
  Transmission Date: 20210114
  Serious: No
  Sender: FDA-Public Use
  Company Number: US-BRECKENRIDGE PHARMACEUTICAL, INC.-2096573

PATIENT
  Age: 72 Year
  Sex: Female

DRUGS (3)
  1. OXCARBAZEPINE TABLET, FILM COATED [Suspect]
     Active Substance: OXCARBAZEPINE
     Indication: DEPRESSION
     Route: 048
  2. GABAPENTIN. [Concomitant]
     Active Substance: GABAPENTIN
  3. TYLENOL [Concomitant]
     Active Substance: ACETAMINOPHEN

REACTIONS (5)
  - Blister [None]
  - Rash [None]
  - Pruritus [None]
  - Eczema [None]
  - Burning sensation [None]
